FAERS Safety Report 12160585 (Version 4)
Quarter: 2016Q4

REPORT INFORMATION
  Report Type: Spontaneous
  Country: US (occurrence: US)
  Receive Date: 20160308
  Receipt Date: 20161216
  Transmission Date: 20170207
  Serious: Yes (Other)
  Sender: FDA-Public Use
  Company Number: US-BAYER-2016-045444

PATIENT
  Age: 39 Year
  Sex: Female
  Weight: 72.8 kg

DRUGS (2)
  1. MIRENA [Suspect]
     Active Substance: LEVONORGESTREL
     Indication: CONTRACEPTION
     Dosage: 20 MCG/24HR, CONT
     Route: 015
     Dates: start: 20120424, end: 20160225
  2. MIRENA [Suspect]
     Active Substance: LEVONORGESTREL

REACTIONS (4)
  - Pregnancy with contraceptive device [Recovered/Resolved]
  - Device difficult to use [Recovered/Resolved]
  - Device malfunction [None]
  - Drug ineffective [None]

NARRATIVE: CASE EVENT DATE: 20120424
